FAERS Safety Report 17291911 (Version 1)
Quarter: 2020Q1

REPORT INFORMATION
  Report Type: Spontaneous
  Country: CN (occurrence: CN)
  Receive Date: 20200121
  Receipt Date: 20200121
  Transmission Date: 20200409
  Serious: Yes (Life-Threatening, Hospitalization, Other)
  Sender: FDA-Public Use
  Company Number: CN-BAYER-2019-217554

PATIENT
  Age: 8 Month
  Sex: Male
  Weight: 8.5 kg

DRUGS (1)
  1. IOPROMIDE. [Suspect]
     Active Substance: IOPROMIDE
     Dosage: 25 ML, ONCE?RADIOLOGICAL EXAMINATION
     Route: 042
     Dates: start: 20191024, end: 20191024

REACTIONS (10)
  - Arteriovenous fistula site haemorrhage [Recovered/Resolved]
  - Peripheral coldness [Recovered/Resolved]
  - Thirst [Recovered/Resolved]
  - Somnolence [Recovering/Resolving]
  - Anaphylactic shock [Recovered/Resolved]
  - Loss of consciousness [Recovered/Resolved]
  - Fatigue [Recovering/Resolving]
  - Mental impairment [Recovering/Resolving]
  - Tachypnoea [Recovered/Resolved]
  - Inflammation [Recovered/Resolved]

NARRATIVE: CASE EVENT DATE: 2019
